FAERS Safety Report 6722860-1 (Version None)
Quarter: 2010Q2

REPORT INFORMATION
  Report Type: 
  Country: None (occurrence: None)
  Receive Date: 20100512
  Receipt Date: 20100512
  Transmission Date: 20101027
  Serious: Yes (Life-Threatening, Hospitalization)
  Sender: FDA-Public Use
  Company Number: None

PATIENT
  Age: 42 Year
  Sex: Female
  Weight: 69.6 kg

DRUGS (2)
  1. FLUOXETINE [Suspect]
     Indication: BIPOLAR I DISORDER
     Dosage: 60 MG AT BEDTIME PO
     Route: 048
  2. RISPERIDONE [Suspect]
     Indication: BIPOLAR I DISORDER
     Dosage: 0.5 MG EVERY DAY PO
     Route: 048

REACTIONS (8)
  - BLOOD ALCOHOL INCREASED [None]
  - HEADACHE [None]
  - MULTIPLE DRUG OVERDOSE INTENTIONAL [None]
  - NAUSEA [None]
  - SUICIDE ATTEMPT [None]
  - TACHYCARDIA [None]
  - TREMOR [None]
  - VOMITING [None]
